FAERS Safety Report 21221141 (Version 1)
Quarter: 2022Q3

REPORT INFORMATION
  Report Type: Spontaneous
  Country: US (occurrence: US)
  Receive Date: 20220817
  Receipt Date: 20220817
  Transmission Date: 20221026
  Serious: Yes (Hospitalization, Other)
  Sender: FDA-Public Use
  Company Number: US-MLMSERVICE-20220801-3709311-1

PATIENT
  Age: 56 Year
  Sex: Male

DRUGS (4)
  1. BENZTROPINE [Suspect]
     Active Substance: BENZTROPINE
     Indication: Schizoaffective disorder
     Dosage: 1 MILLIGRAM, BID (TWICE A DAY)
     Route: 065
  2. BENZTROPINE [Suspect]
     Active Substance: BENZTROPINE
     Dosage: 0.5 (UNITS NOT SPECIFIED), BID
     Route: 065
  3. CLOZAPINE [Suspect]
     Active Substance: CLOZAPINE
     Indication: Schizoaffective disorder
     Dosage: 550 MILLIGRAM, QD (AT BED TIME)
     Route: 065
  4. CLOZAPINE [Suspect]
     Active Substance: CLOZAPINE
     Dosage: 200 MILLIGRAM, QD (AT BED TIME)
     Route: 065

REACTIONS (2)
  - Small intestinal obstruction [Recovering/Resolving]
  - Gastrointestinal hypomotility [Recovering/Resolving]
